FAERS Safety Report 9774156 (Version 2)
Quarter: 2014Q1

REPORT INFORMATION
  Report Type: Spontaneous
  Country: FR (occurrence: FR)
  Receive Date: 20131220
  Receipt Date: 20140115
  Transmission Date: 20141002
  Serious: Yes (Life-Threatening)
  Sender: FDA-Public Use
  Company Number: FR-MERCK-1312FRA008357

PATIENT
  Age: 17 Year
  Sex: Male

DRUGS (9)
  1. AERIUS [Suspect]
     Dosage: UNK
     Route: 048
     Dates: start: 20131204, end: 20131204
  2. TRAMADOL HYDROCHLORIDE [Suspect]
     Dosage: UNK
     Route: 048
     Dates: start: 20131204, end: 20131204
  3. ACETAMINOPHEN [Suspect]
     Dosage: UNK
     Route: 048
     Dates: start: 20131204, end: 20131204
  4. TETRAZEPAM [Suspect]
     Dosage: UNK
     Route: 048
     Dates: start: 20131204, end: 20131204
  5. IBUPROFEN [Suspect]
     Dosage: UNK
     Route: 048
     Dates: start: 20131204, end: 20131204
  6. TARDYFERON [Suspect]
     Dosage: UNK
     Route: 065
  7. TRIMEBUTINE [Suspect]
     Dosage: UNK
     Route: 048
     Dates: start: 20131204, end: 20131204
  8. FUMAFER [Suspect]
     Dosage: UNK
     Route: 048
     Dates: start: 20131204, end: 20131204
  9. INEXIUM [Concomitant]
     Route: 065

REACTIONS (3)
  - Vomiting [Recovered/Resolved]
  - Hypokalaemia [Recovered/Resolved]
  - Sinus tachycardia [Recovered/Resolved]
